FAERS Safety Report 9948642 (Version 2)
Quarter: 2014Q1

REPORT INFORMATION
  Report Type: Spontaneous
  Country: NL (occurrence: NL)
  Receive Date: 20140304
  Receipt Date: 20140319
  Transmission Date: 20141002
  Serious: Yes (Other)
  Sender: FDA-Public Use
  Company Number: NL-ROCHE-1355664

PATIENT
  Sex: Male

DRUGS (11)
  1. AVASTIN [Suspect]
     Indication: RECTAL CANCER METASTATIC
     Route: 042
     Dates: start: 20130318, end: 20130830
  2. XELODA [Suspect]
     Indication: RECTAL CANCER METASTATIC
     Route: 048
  3. OXALIPLATIN [Suspect]
     Indication: RECTAL CANCER METASTATIC
     Route: 065
  4. NITRO SPRAY [Concomitant]
     Route: 065
  5. ADALAT OROS [Concomitant]
     Route: 065
  6. ZANTAC [Concomitant]
     Route: 065
  7. LISINOPRIL [Concomitant]
     Route: 065
  8. CARBASALATE CALCIUM [Concomitant]
     Route: 065
  9. SELOKEEN ZOC [Concomitant]
     Route: 065
  10. MONOCEDOCARD [Concomitant]
     Route: 065
  11. PANZYTRAT [Concomitant]
     Dosage: (1-2-1)
     Route: 048

REACTIONS (1)
  - Nephrotic syndrome [Not Recovered/Not Resolved]
